FAERS Safety Report 10601281 (Version 1)
Quarter: 2014Q4

REPORT INFORMATION
  Report Type: Spontaneous
  Country: GB (occurrence: GB)
  Receive Date: 20141124
  Receipt Date: 20141124
  Transmission Date: 20150529
  Serious: Yes (Other)
  Sender: FDA-Public Use
  Company Number: GB-009507513-1411GBR007379

PATIENT
  Sex: Female

DRUGS (3)
  1. PERICIAZINE [Concomitant]
     Active Substance: PERICIAZINE
     Indication: ANXIETY
     Dosage: UNK
     Route: 065
  2. MIRTAZAPINE. [Suspect]
     Active Substance: MIRTAZAPINE
     Indication: PRODUCT USED FOR UNKNOWN INDICATION
     Dosage: 30 MG, UNKNOWN
     Route: 065
     Dates: start: 201409
  3. PERICIAZINE [Concomitant]
     Active Substance: PERICIAZINE
     Indication: DEPRESSION

REACTIONS (3)
  - Obstructive airways disorder [Unknown]
  - Dyspnoea [Unknown]
  - Sleep apnoea syndrome [Unknown]
